FAERS Safety Report 24613735 (Version 1)
Quarter: 2024Q4

REPORT INFORMATION
  Report Type: Spontaneous
  Country: IT (occurrence: IT)
  Receive Date: 20241113
  Receipt Date: 20241113
  Transmission Date: 20250114
  Serious: Yes (Hospitalization)
  Sender: BAXTER
  Company Number: None

PATIENT
  Age: 6 Year
  Sex: Male
  Weight: 18 kg

DRUGS (1)
  1. ACETAMINOPHEN [Suspect]
     Active Substance: ACETAMINOPHEN
     Indication: Abdominal pain
     Dosage: 1000 MG, UNSPECIFIED FREQUENCY
     Route: 042
     Dates: start: 20240927, end: 20240927

REACTIONS (3)
  - Accidental overdose [Recovered/Resolved]
  - Transaminases increased [Recovering/Resolving]
  - Analgesic drug level increased [Recovering/Resolving]

NARRATIVE: CASE EVENT DATE: 20240927
